FAERS Safety Report 7575260-9 (Version None)
Quarter: 2011Q2

REPORT INFORMATION
  Report Type: 
  Country: None (occurrence: None)
  Receive Date: 20110627
  Receipt Date: 20110613
  Transmission Date: 20111010
  Serious: Yes (Hospitalization)
  Sender: FDA-Public Use
  Company Number: US-ELI_LILLY_AND_COMPANY-US201101001860

PATIENT
  Sex: Female

DRUGS (25)
  1. FORTEO [Suspect]
     Dosage: 20 UG, QD
  2. PREDNISONE [Concomitant]
  3. MS CONTIN [Concomitant]
  4. CALCIUM CARBONATE [Concomitant]
  5. LEVOTHROID [Concomitant]
  6. MAG-OX [Concomitant]
  7. MIRALAX [Concomitant]
  8. PERCOCET [Concomitant]
  9. KLOR-CON [Concomitant]
  10. COUMADIN [Concomitant]
  11. LANTUS [Concomitant]
  12. STARLIX [Concomitant]
  13. ANTISEPTICS [Concomitant]
  14. COLACE [Concomitant]
  15. ZYLOPRIM [Concomitant]
  16. AMBIEN [Concomitant]
  17. FORTEO [Suspect]
     Indication: OSTEOPOROSIS
     Dosage: 20 UG, QD
     Dates: start: 20101001
  18. TENORMIN [Concomitant]
  19. ROBAXIN [Concomitant]
  20. PRILOSEC [Concomitant]
  21. REQUIP [Concomitant]
  22. NOVOLOG [Concomitant]
  23. PRAVACHOL [Concomitant]
  24. LEXAPRO [Concomitant]
  25. EXELON [Concomitant]

REACTIONS (6)
  - APHONIA [None]
  - CONTUSION [None]
  - ASTHENIA [None]
  - FALL [None]
  - LOWER LIMB FRACTURE [None]
  - INFLUENZA [None]
